FAERS Safety Report 8432288-4 (Version None)
Quarter: 2012Q2

REPORT INFORMATION
  Report Type: 
  Country: None (occurrence: None)
  Receive Date: 20120613
  Receipt Date: 20120608
  Transmission Date: 20120825
  Serious: Yes (Other)
  Sender: FDA-Public Use
  Company Number: PHHY2012MX045303

PATIENT
  Sex: Female

DRUGS (8)
  1. PLENACOR [Concomitant]
     Dosage: 1 DF, DAILY
  2. VYTORIN [Concomitant]
     Indication: BLOOD TRIGLYCERIDES ABNORMAL
  3. ENOXAPARIN SODIUM [Concomitant]
     Indication: GENERALISED OEDEMA
  4. VYTORIN [Concomitant]
     Indication: BLOOD CHOLESTEROL ABNORMAL
  5. DIOVAN HCT [Suspect]
     Indication: HYPERTENSION
     Dosage: 1  TABLET (320 G VALS/25 MG HYDR) DAILY
     Dates: start: 20090401
  6. ASPIRIN [Concomitant]
     Indication: COAGULOPATHY
     Dosage: 100 MG, UNK
     Dates: start: 20120101
  7. LEVOTHYROXINE SODIUM [Concomitant]
     Dosage: 100 MG, DAILY
  8. VYTORIN [Concomitant]
     Indication: HYPERTENSION
     Dosage: 1 DF, DAILY

REACTIONS (4)
  - BLOOD TRIGLYCERIDES DECREASED [None]
  - THROMBOSIS [None]
  - BLOOD CHOLESTEROL DECREASED [None]
  - FATIGUE [None]
